FAERS Safety Report 6419353-8 (Version None)
Quarter: 2009Q4

REPORT INFORMATION
  Report Type: 
  Country: None (occurrence: None)
  Receive Date: 20091029
  Receipt Date: 20091019
  Transmission Date: 20100525
  Serious: Yes (Hospitalization)
  Sender: FDA-Public Use
  Company Number: CA-JNJFOC-20090106525

PATIENT
  Sex: Female
  Weight: 65 kg

DRUGS (8)
  1. REMICADE [Suspect]
     Route: 042
     Dates: start: 20081001, end: 20091001
  2. REMICADE [Suspect]
     Indication: PSORIATIC ARTHROPATHY
     Dosage: EVERY 8 ^S^
     Route: 042
     Dates: start: 20081001, end: 20091001
  3. PREDNISONE TAB [Concomitant]
  4. CELEBREX [Concomitant]
  5. FOLIC ACID [Concomitant]
     Dosage: 2.5MG
  6. FOSAMAX [Concomitant]
     Dosage: 70
  7. CITALOPRAM HYDROBROMIDE [Concomitant]
  8. METHOTREXATE [Concomitant]
     Dosage: 15
     Route: 048

REACTIONS (2)
  - HOSPITALISATION [None]
  - NASOPHARYNGITIS [None]
